FAERS Safety Report 7840573 (Version 3)
Quarter: 2012Q4

REPORT INFORMATION
  Report Type: 
  Country: US (occurrence: US)
  Receive Date: 20110304
  Receipt Date: 20121119
  Transmission Date: 20130627
  Serious: Yes (Other)
  Sender: FDA-Public Use
  Company Number: US-PFIZER INC-2011043901

PATIENT
  Sex: Female

DRUGS (6)
  1. EFFEXOR [Suspect]
     Dosage: UNK
  2. EFFEXOR XR [Suspect]
     Dosage: UNK
  3. XANAX [Suspect]
     Dosage: UNK
  4. PENICILLIN [Suspect]
     Dosage: UNK
  5. VYTORIN [Suspect]
     Dosage: UNK
  6. TYROSINE [Suspect]
     Dosage: UNK

REACTIONS (16)
  - Panic attack [Unknown]
  - Feeling abnormal [Unknown]
  - Feeling abnormal [Unknown]
  - Insomnia [Unknown]
  - Insomnia [Unknown]
  - Feeling abnormal [Unknown]
  - Diarrhoea [Unknown]
  - Feeling abnormal [Unknown]
  - Feeling jittery [Unknown]
  - Dehydration [Unknown]
  - Feeling abnormal [Unknown]
  - Dry mouth [Unknown]
  - Hypersensitivity [Unknown]
  - Flushing [Unknown]
  - Drug ineffective [Unknown]
  - Incorrect dose administered [Unknown]
